FAERS Safety Report 8316499-4 (Version None)
Quarter: 2012Q2

REPORT INFORMATION
  Report Type: 
  Country: None (occurrence: None)
  Receive Date: 20120427
  Receipt Date: 20120419
  Transmission Date: 20120825
  Serious: Yes (Other)
  Sender: FDA-Public Use
  Company Number: PHHY2012BR033788

PATIENT
  Sex: Female

DRUGS (1)
  1. EXELON [Suspect]
     Dosage: 9 MG/5 CM2
     Route: 062

REACTIONS (6)
  - WOUND [None]
  - SCAB [None]
  - JOINT INJURY [None]
  - FALL [None]
  - APPLICATION SITE DERMATITIS [None]
  - APPLICATION SITE IRRITATION [None]
